FAERS Safety Report 8941762 (Version 1)
Quarter: 2012Q4

REPORT INFORMATION
  Report Type: 
  Country: CH (occurrence: CH)
  Receive Date: 20121203
  Receipt Date: 20121203
  Transmission Date: 20130627
  Serious: Yes (Other)
  Sender: FDA-Public Use
  Company Number: PHHY2012CH108429

PATIENT
  Sex: Female

DRUGS (10)
  1. ALLOPURINOL [Suspect]
     Indication: GOUT
     Dosage: 200 mg, UNK
     Route: 048
     Dates: start: 2011, end: 201109
  2. SANDIMMUN NEORAL [Suspect]
     Indication: NEPHROTIC SYNDROME
     Dosage: 100 mg, UNK
     Route: 048
  3. PREDNISON [Suspect]
     Indication: NEPHROTIC SYNDROME
     Dosage: 12.5 mg, UNK
     Route: 048
  4. TOREM [Suspect]
     Indication: GENERALISED OEDEMA
     Dosage: 30 mg, UNK
     Route: 048
     Dates: start: 2011, end: 201109
  5. COLCHICINE [Suspect]
     Indication: GOUT
     Dosage: 0.5 mg, UNK
     Route: 048
     Dates: start: 20110915, end: 20110917
  6. APROVEL [Suspect]
     Indication: NEPHROTIC SYNDROME
     Dosage: 300 mg, UNK
     Route: 048
     Dates: start: 2011, end: 201109
  7. SORTIS [Suspect]
     Indication: HYPERLIPIDAEMIA
     Dosage: 40 mg, UNK
     Route: 048
     Dates: start: 2011, end: 201109
  8. EUTHYROX [Suspect]
     Indication: HYPOTHYROIDISM
     Dosage: 100 ug, UNK
     Route: 048
  9. CALCIUM [Suspect]
     Route: 048
  10. VITAMIN D [Suspect]
     Route: 048

REACTIONS (4)
  - Renal failure chronic [Unknown]
  - Gout [Unknown]
  - Drug ineffective [Unknown]
  - Maternal exposure during pregnancy [Unknown]
